FAERS Safety Report 15593227 (Version 1)
Quarter: 2018Q4

REPORT INFORMATION
  Report Type: Report from Study
  Country: US (occurrence: US)
  Receive Date: 20181107
  Receipt Date: 20181107
  Transmission Date: 20190205
  Serious: Yes (Hospitalization)
  Sender: FDA-Public Use
  Company Number: US-TAKEDA-2018TUS031935

PATIENT
  Age: 52 Year
  Sex: Female
  Weight: 81.63 kg

DRUGS (5)
  1. TRINTELLIX [Concomitant]
     Active Substance: VORTIOXETINE HYDROBROMIDE
     Indication: MAJOR DEPRESSION
     Dosage: 20 MG, UNK
     Route: 048
     Dates: start: 2016
  2. AMITRIPTYLINE [Concomitant]
     Active Substance: AMITRIPTYLINE
     Indication: SLEEP DISORDER
     Dosage: 50 MG, UNK
     Route: 048
     Dates: start: 201809
  3. REXULTI [Concomitant]
     Active Substance: BREXPIPRAZOLE
     Indication: MAJOR DEPRESSION
     Dosage: 3 MG, UNK
     Route: 048
     Dates: start: 2016
  4. NABUMETONE. [Concomitant]
     Active Substance: NABUMETONE
     Dosage: 750 MG, QD
     Route: 048
     Dates: start: 201809
  5. VEDOLIZUMAB [Suspect]
     Active Substance: VEDOLIZUMAB
     Indication: CROHN^S DISEASE
     Dosage: 300 MG, UNK
     Route: 042
     Dates: start: 201702

REACTIONS (2)
  - Crohn^s disease [Recovering/Resolving]
  - Chondropathy [Recovering/Resolving]

NARRATIVE: CASE EVENT DATE: 201702
